FAERS Safety Report 5121739-9 (Version None)
Quarter: 2006Q4

REPORT INFORMATION
  Report Type: 
  Country: None (occurrence: None)
  Receive Date: 20061006
  Receipt Date: 20060726
  Transmission Date: 20070319
  Serious: Yes (Death, Hospitalization)
  Sender: FDA-Public Use
  Company Number: PHBS2006JP11278

PATIENT
  Age: 41 Year
  Sex: Male

DRUGS (4)
  1. NEORAL [Suspect]
     Indication: LIVER TRANSPLANT
     Dosage: UNK, UNK
     Route: 065
     Dates: start: 20020120, end: 20020215
  2. TACROLIMUS [Suspect]
     Indication: LIVER TRANSPLANT
     Route: 065
  3. DRUG THERAPY NOS [Concomitant]
     Dates: start: 20020120, end: 20020215
  4. STEROIDS NOS [Concomitant]
     Dosage: PULSE THERAPY
     Dates: start: 20020112, end: 20020114

REACTIONS (6)
  - BLOOD BETA-D-GLUCAN INCREASED [None]
  - CANDIDIASIS [None]
  - PLEURAL HAEMORRHAGE [None]
  - SYSTEMIC MYCOSIS [None]
  - THROMBOTIC MICROANGIOPATHY [None]
  - WHITE BLOOD CELL COUNT INCREASED [None]
